FAERS Safety Report 5211579-4 (Version None)
Quarter: 2007Q1

REPORT INFORMATION
  Report Type: 
  Country: None (occurrence: None)
  Receive Date: 20070116
  Receipt Date: 20070116
  Transmission Date: 20070707
  Serious: Yes (Other)
  Sender: FDA-Public Use
  Company Number: None

PATIENT
  Age: 58 Year
  Sex: Male
  Weight: 63.7 kg

DRUGS (7)
  1. WARFARIN SODIUM [Suspect]
     Indication: EMBOLISM
     Dosage: 3MG  DAILY  PO   PRIOR TO ADMISSION
     Route: 048
  2. AVELOX [Suspect]
     Indication: RESPIRATORY TRACT INFECTION
     Dosage: 400MG  DAILY  IV ON 05/05/06  PO ON 5/06/06
     Dates: start: 20060505, end: 20060506
  3. HYDROCODONE BITARTRATE + ACETAMINOPHEN [Concomitant]
  4. LEXAPRO [Concomitant]
  5. TRAZODONE HCL [Concomitant]
  6. DURAGESIC-100 [Concomitant]
  7. PROTONIX [Concomitant]

REACTIONS (1)
  - INTERNATIONAL NORMALISED RATIO INCREASED [None]
